FAERS Safety Report 4396734-8 (Version None)
Quarter: 2004Q3

REPORT INFORMATION
  Report Type: 
  Country: None (occurrence: None)
  Receive Date: 20040709
  Receipt Date: 20040705
  Transmission Date: 20050211
  Serious: Yes (Hospitalization)
  Sender: FDA-Public Use
  Company Number: 200412142GDS

PATIENT
  Age: 66 Year
  Sex: Male
  Weight: 70 kg

DRUGS (1)
  1. ASPIRIN [Suspect]
     Indication: ANTICOAGULANT THERAPY

REACTIONS (12)
  - ACUTE MYOCARDIAL INFARCTION [None]
  - BLOOD CREATININE INCREASED [None]
  - BLOOD PRESSURE IMMEASURABLE [None]
  - BLUE TOE SYNDROME [None]
  - C-REACTIVE PROTEIN INCREASED [None]
  - CORONARY ARTERY OCCLUSION [None]
  - EXTREMITY NECROSIS [None]
  - FAT EMBOLISM [None]
  - PAIN IN EXTREMITY [None]
  - POST PROCEDURAL COMPLICATION [None]
  - SHOCK [None]
  - VENTRICULAR HYPOKINESIA [None]
